FAERS Safety Report 8032479-0 (Version None)
Quarter: 2012Q1

REPORT INFORMATION
  Report Type: 
  Country: None (occurrence: None)
  Receive Date: 20120110
  Receipt Date: 20120105
  Transmission Date: 20120608
  Serious: Yes (Disabling, Other)
  Sender: FDA-Public Use
  Company Number: DE-JNJFOC-20111210730

PATIENT
  Age: 74 Year
  Sex: Male

DRUGS (5)
  1. SIMVASTATIN [Concomitant]
     Route: 065
  2. BISOPROLOL FUMARATE AND HYDROCHLOROTHIAZIDE [Concomitant]
     Route: 065
  3. LEVOFLOXACIN [Suspect]
     Indication: URINARY TRACT INFECTION
     Route: 048
     Dates: start: 20111208, end: 20111212
  4. ASPIRIN [Concomitant]
     Route: 065
  5. ATACAND [Concomitant]
     Route: 065

REACTIONS (4)
  - HAEMATOMA [None]
  - MUSCLE RUPTURE [None]
  - MYALGIA [None]
  - TENDON PAIN [None]
